FAERS Safety Report 10050496 (Version 1)
Quarter: 2014Q2

REPORT INFORMATION
  Report Type: Spontaneous
  Country: US (occurrence: US)
  Receive Date: 20140401
  Receipt Date: 20140401
  Transmission Date: 20141212
  Serious: No
  Sender: FDA-Public Use
  Company Number: US-ASTRAZENECA-2013SE83514

PATIENT
  Age: 52 Year
  Sex: Female
  Weight: 95.3 kg

DRUGS (2)
  1. NEXIUM [Suspect]
     Indication: GASTROOESOPHAGEAL REFLUX DISEASE
     Route: 048
     Dates: start: 2003, end: 2013
  2. NEXIUM [Suspect]
     Indication: HIATUS HERNIA
     Route: 048
     Dates: start: 2003, end: 2013

REACTIONS (11)
  - Weight decreased [Unknown]
  - Weight increased [Unknown]
  - Blood cholesterol increased [Unknown]
  - Blood pressure increased [Unknown]
  - Blood pressure decreased [Unknown]
  - Gastric disorder [Unknown]
  - Chest discomfort [Unknown]
  - Feeling abnormal [Unknown]
  - Diabetes mellitus [Unknown]
  - Nausea [Unknown]
  - Drug dose omission [Unknown]
